FAERS Safety Report 9611045 (Version 2)
Quarter: 2014Q1

REPORT INFORMATION
  Report Type: Report from Study
  Country: JP (occurrence: JP)
  Receive Date: 20131009
  Receipt Date: 20140128
  Transmission Date: 20141002
  Serious: Yes (Other)
  Sender: FDA-Public Use
  Company Number: JP-ROCHE-1286860

PATIENT
  Sex: Male
  Weight: 40 kg

DRUGS (11)
  1. OMALIZUMAB [Suspect]
     Indication: ASTHMA
     Route: 058
     Dates: start: 20111219
  2. OMALIZUMAB [Suspect]
     Dosage: SIX SHOT
     Route: 058
     Dates: start: 20120507, end: 20120507
  3. DIOVAN [Concomitant]
  4. SYMBICORT [Concomitant]
  5. SPIROPENT [Concomitant]
  6. SINGULAIR [Concomitant]
  7. GOODMIN [Concomitant]
  8. FRANDOL [Concomitant]
  9. LASIX [Concomitant]
     Route: 065
     Dates: end: 20120114
  10. FLIVAS [Concomitant]
  11. VANCOMYCIN HYDROCHLORIDE [Concomitant]
     Route: 065
     Dates: start: 20120511, end: 20120517

REACTIONS (1)
  - Pseudomembranous colitis [Recovered/Resolved]
